FAERS Safety Report 20764450 (Version 1)
Quarter: 2022Q2

REPORT INFORMATION
  Report Type: Spontaneous
  Country: RU (occurrence: None)
  Receive Date: 20220428
  Receipt Date: 20220428
  Transmission Date: 20220721
  Serious: Yes (Other)
  Sender: FDA-Public Use
  Company Number: RU-Merck Healthcare KGaA-9316414

PATIENT
  Age: 50 Year
  Sex: Male

DRUGS (1)
  1. BAVENCIO [Suspect]
     Active Substance: AVELUMAB
     Indication: Bladder cancer
     Route: 041
     Dates: start: 202203, end: 202204

REACTIONS (1)
  - Orchitis [Unknown]

NARRATIVE: CASE EVENT DATE: 20220401
